FAERS Safety Report 8419547 (Version 2)
Quarter: 2013Q1

REPORT INFORMATION
  Report Type: Report from Study
  Country: FR (occurrence: FR)
  Receive Date: 20120221
  Receipt Date: 20130326
  Transmission Date: 20140127
  Serious: Yes (Life-Threatening, Hospitalization)
  Sender: FDA-Public Use
  Company Number: FR-ROCHE-717685

PATIENT
  Age: 57 Year
  Sex: Male
  Weight: 89 kg

DRUGS (3)
  1. RITUXIMAB [Suspect]
     Indication: B-CELL LYMPHOMA
     Route: 065
  2. SANDOGLOBULINE [Concomitant]
     Indication: INFECTION PROPHYLAXIS
     Route: 065
  3. IMMUNE GLOBULIN, INTRAVENOUS [Concomitant]
     Indication: INFECTION PROPHYLAXIS
     Dosage: DRUG REPORTED AS: PRIVIGEN.
     Route: 042

REACTIONS (2)
  - Hypogammaglobulinaemia [Recovered/Resolved]
  - Lung infection [Recovered/Resolved]
